FAERS Safety Report 8611525-7 (Version None)
Quarter: 2012Q3

REPORT INFORMATION
  Report Type: 
  Country: None (occurrence: None)
  Receive Date: 20120809
  Receipt Date: 20120725
  Transmission Date: 20120928
  Serious: Yes (Death, Hospitalization, Other)
  Sender: FDA-Public Use
  Company Number: 2012MA009140

PATIENT
  Age: 17 Year
  Sex: Male

DRUGS (4)
  1. OXYCODONE AND ACETAMINOPHEN [Suspect]
     Indication: INTENTIONAL DRUG MISUSE
     Dosage: PO
     Route: 048
  2. CLONAZEPAM [Suspect]
     Indication: INTENTIONAL DRUG MISUSE
     Dosage: PO
     Route: 048
  3. KADIAN [Suspect]
     Indication: SEDATION
  4. ZOLPIDEM TARTRATE [Suspect]
     Indication: INTENTIONAL DRUG MISUSE
     Dosage: PO
     Route: 048

REACTIONS (10)
  - CEREBELLAR INFARCTION [None]
  - RENAL FAILURE [None]
  - HAEMODIALYSIS [None]
  - BRAIN HERNIATION [None]
  - CARDIOMEGALY [None]
  - ALANINE AMINOTRANSFERASE INCREASED [None]
  - UNRESPONSIVE TO STIMULI [None]
  - HYPOTENSION [None]
  - DRUG ABUSE [None]
  - LOSS OF CONSCIOUSNESS [None]
